FAERS Safety Report 26121353 (Version 2)
Quarter: 2025Q4

REPORT INFORMATION
  Report Type: Spontaneous
  Country: JP (occurrence: JP)
  Receive Date: 20251204
  Receipt Date: 20251219
  Transmission Date: 20260117
  Serious: Yes (Life-Threatening, Hospitalization, Other)
  Sender: BRISTOL-MYERS SQUIBB COMPANY
  Company Number: JP-BRISTOL-MYERS SQUIBB COMPANY-2025-162876

PATIENT
  Age: 82 Year
  Sex: Male

DRUGS (1)
  1. OPDIVO [Suspect]
     Active Substance: NIVOLUMAB
     Indication: Malignant neoplasm of unknown primary site
     Dosage: UNK, Q4W
     Route: 041
     Dates: start: 20230605

REACTIONS (12)
  - Coronavirus pneumonia [Unknown]
  - Pneumothorax [Unknown]
  - Melaena [Unknown]
  - Interstitial lung disease [Unknown]
  - General physical health deterioration [Unknown]
  - Asthenia [Unknown]
  - Illness [Unknown]
  - Colitis [Unknown]
  - Enteritis [Unknown]
  - Auditory disorder [Unknown]
  - Eating disorder [Unknown]
  - Visual impairment [Unknown]

NARRATIVE: CASE EVENT DATE: 20230718
